FAERS Safety Report 25099456 (Version 1)
Quarter: 2025Q1

REPORT INFORMATION
  Report Type: Other
  Country: BR (occurrence: BR)
  Receive Date: 20250320
  Receipt Date: 20250320
  Transmission Date: 20250408
  Serious: No
  Sender: TOLMAR
  Company Number: BR-TOLMAR, INC.-25BR057239

PATIENT
  Age: 11 Year
  Sex: Female

DRUGS (2)
  1. ELIGARD [Suspect]
     Active Substance: LEUPROLIDE ACETATE
     Indication: Dwarfism
  2. ELIGARD [Suspect]
     Active Substance: LEUPROLIDE ACETATE
     Indication: Dwarfism

REACTIONS (1)
  - Off label use [Unknown]
